FAERS Safety Report 13584493 (Version 7)
Quarter: 2018Q1

REPORT INFORMATION
  Report Type: Report from Study
  Country: DE (occurrence: DE)
  Receive Date: 20170526
  Receipt Date: 20180226
  Transmission Date: 20180508
  Serious: Yes (Hospitalization, Other)
  Sender: FDA-Public Use
  Company Number: DE-BRISTOL-MYERS SQUIBB COMPANY-BMS-2017-044444

PATIENT
  Sex: Male

DRUGS (5)
  1. ENOXAPARIN [Concomitant]
     Active Substance: ENOXAPARIN
     Indication: CARDIOVASCULAR DISORDER
     Dosage: 160 MG, UNK
     Route: 065
     Dates: start: 20170119
  2. METOPROLOL. [Concomitant]
     Active Substance: METOPROLOL
     Indication: CEREBROVASCULAR DISORDER
     Route: 065
  3. METOPROLOL. [Concomitant]
     Active Substance: METOPROLOL
     Indication: CARDIOVASCULAR DISORDER
     Dosage: 95 MG, UNK
     Route: 065
     Dates: start: 20170119
  4. NIVOLUMAB [Suspect]
     Active Substance: NIVOLUMAB
     Indication: NON-SMALL CELL LUNG CANCER
     Dosage: 3 MG/KG, Q2WK
     Route: 065
     Dates: start: 20170110
  5. ENOXAPARIN [Concomitant]
     Active Substance: ENOXAPARIN
     Indication: CEREBROVASCULAR DISORDER
     Route: 065

REACTIONS (4)
  - Intervertebral disc operation [Unknown]
  - Malignant neoplasm progression [Recovered/Resolved]
  - Intervertebral disc protrusion [Recovered/Resolved]
  - Nerve root compression [Recovered/Resolved]

NARRATIVE: CASE EVENT DATE: 20170424
